FAERS Safety Report 20896501 (Version 1)
Quarter: 2022Q2

REPORT INFORMATION
  Report Type: Report from Study
  Country: NL (occurrence: NL)
  Receive Date: 20220531
  Receipt Date: 20220531
  Transmission Date: 20220720
  Serious: Yes (Other)
  Sender: FDA-Public Use
  Company Number: NL-AMGEN-NLDSL2022083563

PATIENT
  Age: 74 Year
  Sex: Male

DRUGS (20)
  1. XGEVA [Suspect]
     Active Substance: DENOSUMAB
     Indication: Prophylaxis
     Dosage: 120 MILLIGRAM/1,7ML, Q4WK
     Route: 058
     Dates: start: 20210610
  2. AMLODIPINE [Concomitant]
     Active Substance: AMLODIPINE BESYLATE
     Dosage: 5 MILLIGRAM, QD
  3. AMOXICILLIN\CLAVULANIC ACID [Concomitant]
     Active Substance: AMOXICILLIN\CLAVULANIC ACID
     Dosage: 500/125MG 3D1T
  4. BECLOMETASONE;MESALAZINE [Concomitant]
     Dosage: 500MG 2D1S
  5. BISACODYL [Concomitant]
     Active Substance: BISACODYL
     Dosage: 5 MILLIGRAM
  6. CALCIUM CARBONATE\CHOLECALCIFEROL [Concomitant]
     Active Substance: CALCIUM CARBONATE\CHOLECALCIFEROL
     Dosage: 2,5G/880IE (1000MG CA) 1D1T
  7. CITALOPRAM [Concomitant]
     Active Substance: CITALOPRAM HYDROBROMIDE
     Dosage: 20 MILLIGRAM, QD
  8. DALTEPARIN SODIUM [Concomitant]
     Active Substance: DALTEPARIN SODIUM
     Dosage: 15000IE=0,6ML (25.000IE/ML) 1D1INJ
  9. ENZALUTAMIDE [Concomitant]
     Active Substance: ENZALUTAMIDE
     Dosage: 40 MILLIGRAM, TID
  10. LEUPROLIDE [Concomitant]
     Active Substance: LEUPROLIDE
     Dosage: 45 MILLIGRAM, QD
  11. LIDOCAINE [Concomitant]
     Active Substance: LIDOCAINE
  12. CHLOROHEX [Concomitant]
  13. LOPERAMIDE [Concomitant]
     Active Substance: LOPERAMIDE
  14. MESALAMINE [Concomitant]
     Active Substance: MESALAMINE
  15. METOPROLOL [Concomitant]
     Active Substance: METOPROLOL
     Dosage: 50 MILLIGRAM
  16. MORPHINE [Concomitant]
     Active Substance: MORPHINE
  17. SODIUM LAURYL SULFATE;SORBITOL [Concomitant]
     Dosage: 9/625MG/ML FL 5ML
  18. PREDNISOLONE [Concomitant]
     Active Substance: PREDNISOLONE
     Dosage: 5 MILLIGRAM
  19. TAMSULOSIN HYDROCHLORIDE [Concomitant]
     Active Substance: TAMSULOSIN HYDROCHLORIDE
     Dosage: 10 MILLIGRAM
  20. TEMAZEPAM [Concomitant]
     Active Substance: TEMAZEPAM
     Dosage: 10 MILLIGRAM

REACTIONS (3)
  - Jaw disorder [Not Recovered/Not Resolved]
  - Dental caries [Not Recovered/Not Resolved]
  - Pain in jaw [Not Recovered/Not Resolved]

NARRATIVE: CASE EVENT DATE: 20220501
